FAERS Safety Report 11231407 (Version 2)
Quarter: 2015Q3

REPORT INFORMATION
  Report Type: Spontaneous
  Country: US (occurrence: US)
  Receive Date: 20150701
  Receipt Date: 20150727
  Transmission Date: 20151125
  Serious: No
  Sender: FDA-Public Use
  Company Number: US-ASTRAZENECA-2015SE61346

PATIENT
  Age: 764 Month
  Sex: Female
  Weight: 113.4 kg

DRUGS (2)
  1. BYDUREON [Suspect]
     Active Substance: EXENATIDE
     Indication: TYPE 2 DIABETES MELLITUS
     Route: 058
     Dates: start: 201506
  2. BYDUREON [Suspect]
     Active Substance: EXENATIDE
     Indication: GLYCOSYLATED HAEMOGLOBIN DECREASED
     Route: 058
     Dates: start: 201506

REACTIONS (8)
  - Injection site haemorrhage [Unknown]
  - Intentional product misuse [Unknown]
  - Injection site discolouration [Unknown]
  - Gastrooesophageal reflux disease [Recovered/Resolved]
  - Rash [Unknown]
  - Injection site pain [Unknown]
  - Underdose [Unknown]
  - Injection site extravasation [Unknown]

NARRATIVE: CASE EVENT DATE: 201506
